FAERS Safety Report 11222170 (Version 3)
Quarter: 2015Q4

REPORT INFORMATION
  Report Type: Report from Study
  Country: RU (occurrence: RU)
  Receive Date: 20150626
  Receipt Date: 20151203
  Transmission Date: 20160304
  Serious: Yes (Hospitalization)
  Sender: FDA-Public Use
  Company Number: RU-EISAI MEDICAL RESEARCH-EC-2015-006253

PATIENT
  Age: 55 Year
  Sex: Male
  Weight: 73.8 kg

DRUGS (5)
  1. LENVATINIB [Suspect]
     Active Substance: LENVATINIB
     Route: 048
     Dates: start: 20150721, end: 20150921
  2. ACTRAPID HP [Concomitant]
  3. PROTAPHANE [Concomitant]
     Active Substance: INSULIN HUMAN
  4. LENVATINIB [Suspect]
     Active Substance: LENVATINIB
     Indication: HEPATOCELLULAR CARCINOMA
     Route: 048
     Dates: start: 20140225, end: 20150405
  5. LENVATINIB [Suspect]
     Active Substance: LENVATINIB
     Route: 048
     Dates: start: 20150429, end: 20150625

REACTIONS (4)
  - Deep vein thrombosis [Recovered/Resolved]
  - Jaundice cholestatic [Recovered/Resolved]
  - Thrombophlebitis [Recovered/Resolved]
  - Cellulitis [Recovered/Resolved]

NARRATIVE: CASE EVENT DATE: 20150413
